FAERS Safety Report 25372251 (Version 2)
Quarter: 2025Q3

REPORT INFORMATION
  Report Type: Spontaneous
  Country: US (occurrence: US)
  Receive Date: 20250529
  Receipt Date: 20250716
  Transmission Date: 20251020
  Serious: Yes (Other)
  Sender: COOPERSURGICAL
  Company Number: US-COOPERSURGICAL, INC.-2025CPS004222

PATIENT
  Age: 20 Year
  Sex: Female
  Weight: 90.703 kg

DRUGS (1)
  1. PARAGARD T 380A [Suspect]
     Active Substance: COPPER
     Indication: Contraception
     Route: 015
     Dates: start: 20080101

REACTIONS (14)
  - Internal haemorrhage [Recovered/Resolved]
  - Reproductive complication associated with device [Recovered/Resolved]
  - Infertility female [Recovered/Resolved]
  - Caesarean section [Recovered/Resolved]
  - Device breakage [Recovered/Resolved]
  - Foreign body in reproductive tract [Recovered/Resolved]
  - Complication of device removal [Recovered/Resolved]
  - Ectopic pregnancy with contraceptive device [Recovered/Resolved]
  - Drug ineffective [Unknown]
  - Emotional distress [Unknown]
  - Emotional disorder [Unknown]
  - Pelvic pain [Recovered/Resolved]
  - Device use issue [Recovered/Resolved]
  - Off label use [Unknown]

NARRATIVE: CASE EVENT DATE: 20180501
